FAERS Safety Report 11100189 (Version 1)
Quarter: 2015Q2

REPORT INFORMATION
  Report Type: Spontaneous
  Country: US (occurrence: None)
  Receive Date: 20150507
  Receipt Date: 20150507
  Transmission Date: 20150821
  Serious: Yes (Death)
  Sender: FDA-Public Use
  Company Number: None

PATIENT
  Age: 73 Year
  Sex: Female
  Weight: 35.38 kg

DRUGS (6)
  1. LIPITOR [Concomitant]
     Active Substance: ATORVASTATIN CALCIUM
  2. DILANTIN [Concomitant]
     Active Substance: PHENYTOIN
  3. HIGH BLOOD PRESSURE MED [Concomitant]
  4. WARFARIN [Suspect]
     Active Substance: WARFARIN
     Indication: ATRIAL FIBRILLATION
     Dosage: 1 TO 2 PILLS, ONCE DAILY, TAKEN BY MOUTH
     Route: 048
     Dates: start: 20150501
  5. HEART MEDICINE [Concomitant]
  6. WARFARIN [Suspect]
     Active Substance: WARFARIN
     Indication: CEREBROVASCULAR ACCIDENT
     Dosage: 1 TO 2 PILLS, ONCE DAILY, TAKEN BY MOUTH
     Route: 048
     Dates: start: 20150501

REACTIONS (4)
  - Renal failure [None]
  - Oxygen saturation decreased [None]
  - Cerebral haemorrhage [None]
  - General physical health deterioration [None]

NARRATIVE: CASE EVENT DATE: 20150503
